FAERS Safety Report 7523147-X (Version None)
Quarter: 2011Q2

REPORT INFORMATION
  Report Type: 
  Country: None (occurrence: None)
  Receive Date: 20110603
  Receipt Date: 20110531
  Transmission Date: 20111010
  Serious: Yes (Life-Threatening, Other)
  Sender: FDA-Public Use
  Company Number: FR-BRISTOL-MYERS SQUIBB COMPANY-15795719

PATIENT
  Age: 56 Year
  Sex: Female

DRUGS (6)
  1. LYRICA [Interacting]
     Indication: MYALGIA
     Dosage: LYRICA 2 CAPS
     Dates: end: 20110423
  2. CRESTOR [Interacting]
     Dosage: CRESTOR 20MG TABS
     Route: 048
     Dates: end: 20110423
  3. RAMIPRIL [Interacting]
     Dosage: TRIATEC  10MG TABS 2 TABS
     Route: 048
     Dates: end: 20110423
  4. METFORMIN HCL [Interacting]
     Route: 048
     Dates: end: 20110423
  5. EZETIMIBE [Interacting]
     Dosage: EZETROL 10MG TABS
     Route: 048
     Dates: end: 20110423
  6. IRBESARTAN AND HYDROCHLOROTHIAZIDE [Suspect]
     Route: 048
     Dates: end: 20110423

REACTIONS (4)
  - RENAL FAILURE ACUTE [None]
  - RHABDOMYOLYSIS [None]
  - ACIDOSIS [None]
  - DRUG INTERACTION [None]
